FAERS Safety Report 10619924 (Version 2)
Quarter: 2015Q1

REPORT INFORMATION
  Report Type: Spontaneous
  Country: US (occurrence: US)
  Receive Date: 20141202
  Receipt Date: 20150127
  Transmission Date: 20150720
  Serious: No
  Sender: FDA-Public Use
  Company Number: US-009507513-1412USA000965

PATIENT
  Age: 60 Year
  Sex: Female
  Weight: 54.42 kg

DRUGS (1)
  1. OXYTROL FOR WOMEN [Suspect]
     Active Substance: OXYBUTYNIN
     Indication: URINARY INCONTINENCE
     Dosage: 1 DF, Q4D
     Route: 062
     Dates: start: 2014, end: 2014

REACTIONS (6)
  - Drug ineffective [Unknown]
  - Application site pain [Unknown]
  - Application site irritation [Recovered/Resolved]
  - Product closure removal difficult [Unknown]
  - Product physical issue [Unknown]
  - Application site erythema [Recovered/Resolved]

NARRATIVE: CASE EVENT DATE: 2014
